FAERS Safety Report 15192957 (Version 3)
Quarter: 2018Q3

REPORT INFORMATION
  Report Type: Report from Study
  Country: US (occurrence: US)
  Receive Date: 20180725
  Receipt Date: 20180827
  Transmission Date: 20181010
  Serious: Yes (Death, Other)
  Sender: FDA-Public Use
  Company Number: US-ROCHE-2159870

PATIENT
  Age: 77 Year
  Sex: Male

DRUGS (1)
  1. VALCYTE [Suspect]
     Active Substance: VALGANCICLOVIR HYDROCHLORIDE
     Indication: CYTOMEGALOVIRUS INFECTION
     Route: 048
     Dates: start: 2017

REACTIONS (5)
  - Acute respiratory failure [Fatal]
  - Pneumonia aspiration [Fatal]
  - Cardiac failure congestive [Fatal]
  - Hepatic cirrhosis [Unknown]
  - End stage renal disease [Fatal]

NARRATIVE: CASE EVENT DATE: 20180213
